FAERS Safety Report 9161286 (Version 2)
Quarter: 2013Q1

REPORT INFORMATION
  Report Type: Spontaneous
  Country: US (occurrence: US)
  Receive Date: 20130313
  Receipt Date: 20130321
  Transmission Date: 20140127
  Serious: No
  Sender: FDA-Public Use
  Company Number: US-PFIZER INC-2013083136

PATIENT
  Sex: 0

DRUGS (1)
  1. NORVASC [Suspect]
     Dosage: UNK

REACTIONS (3)
  - Urticaria [Unknown]
  - Rash [Unknown]
  - Pain of skin [Unknown]
